FAERS Safety Report 8605905-3 (Version None)
Quarter: 2012Q3

REPORT INFORMATION
  Report Type: 
  Country: None (occurrence: None)
  Receive Date: 20120820
  Receipt Date: 20120814
  Transmission Date: 20120928
  Serious: Yes (Hospitalization)
  Sender: FDA-Public Use
  Company Number: KR-GLAXOSMITHKLINE-B0823821A

PATIENT
  Age: 80 Year
  Sex: Female

DRUGS (1)
  1. PROPAFENONE HCL [Suspect]
     Indication: ARRHYTHMIA
     Dosage: 150MG TWICE PER DAY
     Route: 048
     Dates: start: 20120807

REACTIONS (3)
  - NEUTROPENIA [None]
  - PANCYTOPENIA [None]
  - ANAEMIA [None]
